FAERS Safety Report 19301765 (Version 1)
Quarter: 2021Q2

REPORT INFORMATION
  Report Type: Spontaneous
  Country: US (occurrence: US)
  Receive Date: 20210525
  Receipt Date: 20210525
  Transmission Date: 20210717
  Serious: No
  Sender: FDA-Public Use
  Company Number: US-BIOVITRUM-2021US4686

PATIENT
  Sex: Female
  Weight: 9 kg

DRUGS (4)
  1. SYNAGIS [Suspect]
     Active Substance: PALIVIZUMAB
     Indication: SPINAL MUSCULAR ATROPHY
     Dosage: SYNAGIS 50MG/0.5ML VL LIQUID
     Route: 030
  2. SYNAGIS [Suspect]
     Active Substance: PALIVIZUMAB
     Indication: PREMATURE BABY
  3. SYNAGIS [Suspect]
     Active Substance: PALIVIZUMAB
     Indication: LOW BIRTH WEIGHT BABY
  4. EVRYSDI [Concomitant]
     Active Substance: RISDIPLAM
     Dosage: 60 MG/80 ML ORAL SOLUTION

REACTIONS (2)
  - Increased appetite [Unknown]
  - Weight decreased [Unknown]
